FAERS Safety Report 9563800 (Version 2)
Quarter: 2013Q3

REPORT INFORMATION
  Report Type: Spontaneous
  Country: US (occurrence: None)
  Receive Date: 20130926
  Receipt Date: 20130930
  Transmission Date: 20140515
  Serious: Yes (Other)
  Sender: FDA-Public Use
  Company Number: USA/USA/13/0034642

PATIENT
  Age: 36 Year
  Sex: Female
  Weight: 122.47 kg

DRUGS (6)
  1. RANITIDINE [Suspect]
     Indication: GASTROOESOPHAGEAL REFLUX DISEASE
     Route: 048
  2. FAMOTIDINE (FAMOTIDINE) [Concomitant]
  3. METFORMIN (METFORMIN) [Concomitant]
  4. PROTONIX (PANTOPRAZOLE SODOIUM SEQUIHYDRATE) [Concomitant]
  5. CARAFATE (SUCRALFATE) TABLET, 1G [Concomitant]
  6. NEXIUM (ESOMEPRAZOLE MAGNESIUM) [Concomitant]

REACTIONS (2)
  - Diabetes mellitus [None]
  - Extra dose administered [None]
